FAERS Safety Report 19025281 (Version 1)
Quarter: 2021Q1

REPORT INFORMATION
  Report Type: Report from Study
  Country: US (occurrence: US)
  Receive Date: 20210318
  Receipt Date: 20210318
  Transmission Date: 20210420
  Serious: Yes (Death, Hospitalization, Other)
  Sender: FDA-Public Use
  Company Number: US-GILEAD-2021-0520580

PATIENT
  Age: 77 Year
  Sex: Male

DRUGS (10)
  1. TRIAMTEREN HCT AL [Concomitant]
  2. DILTIAZEM. [Concomitant]
     Active Substance: DILTIAZEM
  3. BREO ELLIPTA [Concomitant]
     Active Substance: FLUTICASONE FUROATE\VILANTEROL TRIFENATATE
  4. SPIRIVA [Concomitant]
     Active Substance: TIOTROPIUM BROMIDE MONOHYDRATE
  5. SIMVASTATIN. [Concomitant]
     Active Substance: SIMVASTATIN
  6. CELEBREX [Concomitant]
     Active Substance: CELECOXIB
  7. ASPIRIN [ACETYLSALICYLIC ACID] [Concomitant]
     Active Substance: ASPIRIN
  8. AZTREONAM LYSINE [Suspect]
     Active Substance: AZTREONAM LYSINE
     Indication: CYSTIC FIBROSIS
     Dosage: 75 MG, TID, 28DAYS ON AND 28DAYS OFF
     Route: 055
  9. ELIQUIS [Concomitant]
     Active Substance: APIXABAN
  10. OLANZAPINE. [Concomitant]
     Active Substance: OLANZAPINE

REACTIONS (2)
  - Death [Fatal]
  - Pneumonia [Unknown]

NARRATIVE: CASE EVENT DATE: 20210314
